FAERS Safety Report 10516533 (Version 1)
Quarter: 2014Q4

REPORT INFORMATION
  Report Type: Spontaneous
  Country: None (occurrence: None)
  Receive Date: 20141003
  Receipt Date: 20141003
  Transmission Date: 20150528
  Serious: Yes (Other)
  Sender: FDA-Public Use
  Company Number: 1401621

PATIENT
  Age: 52 Year
  Sex: Female
  Weight: 89.81 kg

DRUGS (6)
  1. OXYCODONE (OXYCODONE) [Concomitant]
     Active Substance: OXYCODONE
  2. SOVALDI [Suspect]
     Active Substance: SOFOSBUVIR
     Indication: HEPATITIS C
     Route: 048
     Dates: start: 20140404
  3. OXYCONTIN [Concomitant]
     Active Substance: OXYCODONE HYDROCHLORIDE
  4. PEGASYS [Suspect]
     Active Substance: PEGINTERFERON ALFA-2A
     Indication: CHRONIC HEPATITIS C
     Dosage: 180 UG, 1 IN 1 WK, SUBCUTANEOUS
     Route: 058
     Dates: start: 20131113
  5. DEXILANT (DEXANSOPRAZOLE) [Concomitant]
  6. RIBAVIRIN. [Suspect]
     Active Substance: RIBAVIRIN
     Indication: HEPATITIS C
     Route: 048
     Dates: start: 20140404

REACTIONS (1)
  - Injection site infection [None]

NARRATIVE: CASE EVENT DATE: 20140507
